FAERS Safety Report 8113715-9 (Version None)
Quarter: 2012Q1

REPORT INFORMATION
  Report Type: 
  Country: None (occurrence: None)
  Receive Date: 20120203
  Receipt Date: 20120130
  Transmission Date: 20120608
  Serious: Yes (Other)
  Sender: FDA-Public Use
  Company Number: CHPA2012BR002264

PATIENT
  Sex: Female

DRUGS (1)
  1. CIBALENAA [Suspect]
     Dosage: MATERNAL DOSE: 6 DF TOTAL
     Route: 064

REACTIONS (2)
  - FOETAL EXPOSURE DURING PREGNANCY [None]
  - PREMATURE BABY [None]
